FAERS Safety Report 10092957 (Version 1)
Quarter: 2014Q2

REPORT INFORMATION
  Report Type: Spontaneous
  Country: US (occurrence: US)
  Receive Date: 20140421
  Receipt Date: 20140421
  Transmission Date: 20141212
  Serious: No
  Sender: FDA-Public Use
  Company Number: US-SA-2013SA113822

PATIENT
  Age: 63 Year
  Sex: Female

DRUGS (6)
  1. ALLEGRA [Suspect]
     Indication: MULTIPLE ALLERGIES
     Route: 048
     Dates: end: 20130815
  2. ALLEGRA [Suspect]
     Indication: MULTIPLE ALLERGIES
     Route: 048
     Dates: end: 20130815
  3. ALLEGRA [Suspect]
     Indication: MULTIPLE ALLERGIES
     Route: 048
     Dates: end: 20130815
  4. ALLEGRA [Suspect]
     Indication: MULTIPLE ALLERGIES
     Route: 048
     Dates: end: 20130815
  5. ALLEGRA [Suspect]
     Indication: MULTIPLE ALLERGIES
     Route: 048
     Dates: end: 20130815
  6. FEXOFENADINE HYDROCHLORIDE [Suspect]
     Route: 065

REACTIONS (1)
  - Drug ineffective [Unknown]
